FAERS Safety Report 11572023 (Version 1)
Quarter: 2015Q3

REPORT INFORMATION
  Report Type: Spontaneous
  Country: US (occurrence: US)
  Receive Date: 20150916
  Receipt Date: 20150916
  Transmission Date: 20151125
  Serious: No
  Sender: FDA-Public Use
  Company Number: US-ELI_LILLY_AND_COMPANY-US200910001436

PATIENT
  Sex: Female

DRUGS (1)
  1. FORTEO [Suspect]
     Active Substance: TERIPARATIDE
     Indication: OSTEOPOROSIS
     Dosage: 20 UG, DAILY (1/D)
     Route: 058
     Dates: start: 200908

REACTIONS (6)
  - Depressed mood [Unknown]
  - Malaise [Unknown]
  - Limb discomfort [Unknown]
  - Fatigue [Unknown]
  - Pain [Unknown]
  - Jaw disorder [Unknown]

NARRATIVE: CASE EVENT DATE: 2009
